FAERS Safety Report 8369297-X (Version None)
Quarter: 2012Q2

REPORT INFORMATION
  Report Type: 
  Country: None (occurrence: None)
  Receive Date: 20120518
  Receipt Date: 20120514
  Transmission Date: 20120825
  Serious: Yes (Life-Threatening)
  Sender: FDA-Public Use
  Company Number: PHHY2012JP041980

PATIENT
  Age: 77 Year
  Sex: Male

DRUGS (6)
  1. AMLODIPINE BESYLATE [Concomitant]
  2. SARPOGRELATE HYDROCHLORIDE [Concomitant]
  3. ZOLOFT [Concomitant]
  4. LEDOLPER [Concomitant]
  5. RIVASTIGMINE [Suspect]
     Indication: DEMENTIA ALZHEIMER'S TYPE
     Dosage: 18 MG, DAILY
     Route: 062
     Dates: end: 20120511
  6. PRAMIPEXOLE DIHYDROCHLORIDE [Concomitant]

REACTIONS (3)
  - DYSKINESIA [None]
  - DIARRHOEA [None]
  - POLLAKIURIA [None]
